FAERS Safety Report 4606303-X (Version None)
Quarter: 2005Q2

REPORT INFORMATION
  Report Type: 
  Country: None (occurrence: None)
  Receive Date: 20050303
  Receipt Date: 20041221
  Transmission Date: 20051028
  Serious: No
  Sender: FDA-Public Use
  Company Number: 200421215BWH

PATIENT
  Age: 62 Year
  Sex: Male

DRUGS (11)
  1. LEVITRA [Suspect]
     Indication: ERECTILE DYSFUNCTION
     Dosage: SEE IMAGE
     Route: 048
     Dates: start: 20041204, end: 20041201
  2. LEVITRA [Suspect]
     Indication: ERECTILE DYSFUNCTION
     Dosage: SEE IMAGE
     Route: 048
     Dates: start: 20041218
  3. LEVITRA [Suspect]
     Indication: ERECTILE DYSFUNCTION
     Dosage: SEE IMAGE
     Route: 048
     Dates: start: 20041219
  4. DIOVAN [Concomitant]
  5. LIPITOR [Concomitant]
  6. ECOTRIN [Concomitant]
  7. ACIPHEX [Concomitant]
  8. MULTIVITAMIN [Concomitant]
  9. VIT C TAB [Concomitant]
  10. VITAMIN E [Concomitant]
  11. VIAGRA [Concomitant]

REACTIONS (3)
  - HYPOAESTHESIA [None]
  - OEDEMA PERIPHERAL [None]
  - SKIN EXFOLIATION [None]
